FAERS Safety Report 6769220-5 (Version None)
Quarter: 2010Q2

REPORT INFORMATION
  Report Type: 
  Country: None (occurrence: None)
  Receive Date: 20100604
  Receipt Date: 20100528
  Transmission Date: 20101027
  Serious: Yes (Other)
  Sender: FDA-Public Use
  Company Number: 2009SP025786

PATIENT
  Age: 19 Year
  Sex: Female

DRUGS (3)
  1. IMPLANON [Suspect]
     Indication: DRUG USE FOR UNKNOWN INDICATION
  2. TAMIFLU [Concomitant]
  3. DEPOT PROVERA (PREV) [Concomitant]

REACTIONS (4)
  - ABORTION SPONTANEOUS [None]
  - BLOOD THYROID STIMULATING HORMONE DECREASED [None]
  - DRUG EXPOSURE DURING PREGNANCY [None]
  - PREGNANCY WITH IMPLANT CONTRACEPTIVE [None]
